FAERS Safety Report 4680463-7 (Version None)
Quarter: 2005Q2

REPORT INFORMATION
  Report Type: 
  Country: None (occurrence: None)
  Receive Date: 20050602
  Receipt Date: 20050524
  Transmission Date: 20051028
  Serious: Yes (Life-Threatening, Disabling)
  Sender: FDA-Public Use
  Company Number: US-MERCK-0505USA02848

PATIENT
  Age: 46 Year
  Sex: Female

DRUGS (19)
  1. LANTUS [Concomitant]
     Route: 065
  2. LIDODERM [Concomitant]
     Route: 065
  3. HUMALOG [Concomitant]
     Route: 065
  4. ESTRACE [Concomitant]
     Route: 065
  5. DEXCHLORPHENIRAMINE MALEATE [Concomitant]
     Route: 065
  6. FOSAMAX [Suspect]
     Indication: OSTEITIS DEFORMANS
     Route: 048
     Dates: start: 20050101
  7. POTASSIUM (UNSPECIFIED) [Concomitant]
     Route: 065
  8. DARVON [Concomitant]
     Route: 065
  9. LASIX [Concomitant]
     Route: 065
  10. NEXIUM [Concomitant]
     Route: 065
  11. SALAGEN [Concomitant]
     Route: 065
  12. ALTACE [Concomitant]
     Route: 065
  13. ACIPHEX [Concomitant]
     Route: 065
  14. PROTONIX [Concomitant]
     Route: 065
  15. COREG [Concomitant]
     Route: 065
  16. PROMETRIUM [Concomitant]
     Route: 065
  17. SYNTHROID [Concomitant]
     Route: 065
  18. MS CONTIN [Concomitant]
     Route: 065
  19. MS CONTIN [Concomitant]
     Route: 065

REACTIONS (3)
  - DRUG INEFFECTIVE [None]
  - LABORATORY TEST ABNORMAL [None]
  - OSTEITIS DEFORMANS [None]
